FAERS Safety Report 4426605-X (Version None)
Quarter: 2004Q3

REPORT INFORMATION
  Report Type: 
  Country: None (occurrence: None)
  Receive Date: 20040812
  Receipt Date: 20040812
  Transmission Date: 20050211
  Serious: Yes (Other)
  Sender: FDA-Public Use
  Company Number: None

PATIENT
  Age: 31 Year
  Sex: Male
  Weight: 87.9978 kg

DRUGS (2)
  1. ATAZANAVIR (REYATAZ) 300 MG/D (WITH NORVIR 100MG/D) [Suspect]
     Indication: ACQUIRED IMMUNODEFICIENCY SYNDROME
     Dosage: ATAZANAVIR (150MGX2) 300MG/D
  2. NORVIR [Suspect]

REACTIONS (3)
  - BLOOD BILIRUBIN INCREASED [None]
  - BLOOD BILIRUBIN UNCONJUGATED INCREASED [None]
  - OCULAR ICTERUS [None]
